FAERS Safety Report 6204937-2 (Version None)
Quarter: 2009Q2

REPORT INFORMATION
  Report Type: 
  Country: None (occurrence: None)
  Receive Date: 20090526
  Receipt Date: 20090513
  Transmission Date: 20091009
  Serious: Yes (Other)
  Sender: FDA-Public Use
  Company Number: 2009AL003444

PATIENT
  Age: 59 Year
  Sex: Male

DRUGS (6)
  1. EPIRUBICIN HCL [Suspect]
     Indication: GASTRIC CANCER
     Dosage: 100 MG;Q3W;IV
     Route: 042
     Dates: start: 20090218
  2. CARBAMAZEPINE [Suspect]
     Indication: MENTAL DISORDER
     Dosage: 300 MG;BID;PO
     Route: 048
  3. CISPLATIN [Concomitant]
  4. XELODA [Concomitant]
  5. OLANZAPINE [Concomitant]
  6. PERPHENAZINE [Concomitant]

REACTIONS (2)
  - DRUG INTERACTION [None]
  - HALLUCINATION, VISUAL [None]
